FAERS Safety Report 4509197-6 (Version None)
Quarter: 2005Q1

REPORT INFORMATION
  Report Type: 
  Country: None (occurrence: None)
  Receive Date: 20041025
  Receipt Date: 20040224
  Transmission Date: 20050727
  Serious: Yes (Other)
  Sender: FDA-Public Use
  Company Number: NSADSS2002010334

PATIENT
  Age: 42 Year
  Sex: Female
  Weight: 81.6475 kg

DRUGS (11)
  1. REMICADE [Suspect]
     Indication: CROHN'S DISEASE
     Dosage: SEE IMAGE
     Route: 041
     Dates: start: 20021008
  2. REMICADE [Suspect]
     Indication: CROHN'S DISEASE
     Dosage: SEE IMAGE
     Route: 041
     Dates: start: 20021219
  3. REMICADE [Suspect]
     Indication: CROHN'S DISEASE
     Dosage: SEE IMAGE
     Route: 041
     Dates: start: 20030213
  4. FLONASE (FLUTICASONE PROPIONATE) INHALATION [Concomitant]
  5. ALBUTEROL (SALBUTAMOL) INHALATION [Concomitant]
  6. COUGH MEDICINE WITH CODEINE (ALL OTHER THERAPEUTIC PRODUCTS) [Concomitant]
  7. ACIPHEX [Concomitant]
  8. TYLENOL W/ CODEINE NO. 3 [Concomitant]
  9. URISED (URISED) [Concomitant]
  10. MULTIVITAMIN (MULTIVITAMINS) [Concomitant]
  11. REMICADE [Suspect]

REACTIONS (2)
  - ARTHRALGIA [None]
  - SERUM SICKNESS [None]
